FAERS Safety Report 15861691 (Version 13)
Quarter: 2021Q2

REPORT INFORMATION
  Report Type: Spontaneous
  Country: US (occurrence: US)
  Receive Date: 20190124
  Receipt Date: 20210514
  Transmission Date: 20210716
  Serious: No
  Sender: FDA-Public Use
  Company Number: US-PFIZER INC-2019005466

PATIENT
  Age: 64 Year
  Sex: Female
  Weight: 126.1 kg

DRUGS (4)
  1. XELJANZ [Suspect]
     Active Substance: TOFACITINIB CITRATE
     Indication: RHEUMATOID ARTHRITIS
     Dosage: 5 MG, UNK
  2. LISINOPRIL. [Concomitant]
     Active Substance: LISINOPRIL
     Indication: HYPERTENSION
     Dosage: 10 MG, 1X/DAY
     Route: 048
  3. XELJANZ [Suspect]
     Active Substance: TOFACITINIB CITRATE
     Indication: OSTEOARTHRITIS
     Dosage: 5 MG, 2X/DAY (10 MG TABLET TAKE ONE HALF TABLET BY TWO TIMES A DAY)
     Route: 048
     Dates: start: 201811
  4. XELJANZ [Suspect]
     Active Substance: TOFACITINIB CITRATE
     Dosage: 10 MG, ALTERNATE DAY (ONE TABLET ONCE EVERY OTHER DAY)
     Route: 048

REACTIONS (5)
  - Dyspnoea [Unknown]
  - Intentional underdose [Unknown]
  - Pain [Unknown]
  - Oropharyngeal pain [Recovered/Resolved]
  - Illness [Unknown]

NARRATIVE: CASE EVENT DATE: 202004
